FAERS Safety Report 6791645-2 (Version None)
Quarter: 2010Q2

REPORT INFORMATION
  Report Type: 
  Country: None (occurrence: None)
  Receive Date: 20100624
  Receipt Date: 20090724
  Transmission Date: 20101027
  Serious: Yes (Other)
  Sender: FDA-Public Use
  Company Number: US-PFIZER INC-2008058140

PATIENT
  Sex: Female
  Weight: 88.44 kg

DRUGS (5)
  1. PROVERA [Suspect]
     Indication: HORMONE REPLACEMENT THERAPY
     Dosage: 5 MG, UNK
     Route: 048
     Dates: start: 19960701, end: 19970801
  2. PREMARIN [Suspect]
     Indication: HORMONE REPLACEMENT THERAPY
     Dosage: 1.25 MG, UNK
     Dates: start: 19910101, end: 19950101
  3. PREMARIN [Suspect]
     Dosage: 0.625/1.25 MG, UNK
     Dates: start: 19950101, end: 19960101
  4. MAXZIDE [Concomitant]
     Indication: HYPERTENSION
     Dosage: 25 MG, UNK
     Dates: start: 19920101
  5. SYNTHROID [Concomitant]
     Indication: THYROXINE THERAPY
     Dosage: UNK
     Dates: start: 19950101, end: 20040101

REACTIONS (1)
  - BREAST CANCER FEMALE [None]
